FAERS Safety Report 9041537 (Version 3)
Quarter: 2013Q1

REPORT INFORMATION
  Report Type: Report from Study
  Country: NL (occurrence: NL)
  Receive Date: 20130129
  Receipt Date: 20130319
  Transmission Date: 20140127
  Serious: Yes (Life-Threatening, Hospitalization, Other)
  Sender: FDA-Public Use
  Company Number: NL-GENZYME-CLOF-1002493

PATIENT
  Age: 57 None
  Sex: Male

DRUGS (10)
  1. EVOLTRA [Suspect]
     Indication: ACUTE MYELOID LEUKAEMIA
     Dosage: UNK
     Route: 065
  2. VALACICLOVIR [Concomitant]
     Indication: PROPHYLAXIS
     Dosage: 500 MG, UNK
     Route: 048
  3. PYRIMETHAMINE [Concomitant]
     Indication: ANTIFUNGAL PROPHYLAXIS
     Dosage: 50 MG, UNK
     Route: 048
  4. PYRIMETHAMINE [Concomitant]
     Indication: ANTIFUNGAL PROPHYLAXIS
  5. DAPSON [Concomitant]
     Indication: ANTIFUNGAL PROPHYLAXIS
     Dosage: 50 MG, UNK
     Route: 048
  6. DAPSON [Concomitant]
     Indication: ANTIFUNGAL PROPHYLAXIS
  7. RITUXIMAB [Concomitant]
     Indication: EPSTEIN-BARR VIRUS INFECTION
     Dosage: 700 MG, UNK
     Route: 042
     Dates: start: 20130112
  8. FOLIC ACID [Concomitant]
     Indication: ANTIFUNGAL PROPHYLAXIS
     Dosage: 15 MG, UNK
     Route: 048
  9. FOLIC ACID [Concomitant]
     Indication: ANTIFUNGAL PROPHYLAXIS
  10. CIDOFOVIR [Concomitant]
     Indication: VIRAEMIA
     Dosage: 300 MG, UNK
     Route: 042
     Dates: start: 20130110

REACTIONS (5)
  - Graft versus host disease in intestine [Unknown]
  - Bronchitis [Unknown]
  - Renal failure [Unknown]
  - Sepsis [Not Recovered/Not Resolved]
  - Diarrhoea [Not Recovered/Not Resolved]
